FAERS Safety Report 7214197-1 (Version None)
Quarter: 2010Q4

REPORT INFORMATION
  Report Type: 
  Country: None (occurrence: None)
  Receive Date: 20101126
  Receipt Date: 20101001
  Transmission Date: 20110411
  Serious: Yes (Other)
  Sender: FDA-Public Use
  Company Number: 2010SP052555

PATIENT
  Age: 52 Year
  Sex: Male

DRUGS (1)
  1. NASONEX [Suspect]
     Indication: HYPERSENSITIVITY
     Dosage: QD;INH
     Route: 055
     Dates: end: 20100401

REACTIONS (1)
  - OESOPHAGEAL CANDIDIASIS [None]
